FAERS Safety Report 22531120 (Version 2)
Quarter: 2023Q2

REPORT INFORMATION
  Report Type: Spontaneous
  Country: US (occurrence: US)
  Receive Date: 20230607
  Receipt Date: 20230615
  Transmission Date: 20230722
  Serious: Yes (Life-Threatening, Other)
  Sender: FDA-Public Use
  Company Number: US-MYLANLABS-2023M1058364

PATIENT
  Sex: Female

DRUGS (10)
  1. VERAPAMIL HCL [Suspect]
     Active Substance: VERAPAMIL HYDROCHLORIDE
     Indication: Torsade de pointes
     Dosage: UNK
  2. MEXILETINE [Suspect]
     Active Substance: MEXILETINE
     Indication: Torsade de pointes
     Dosage: UNK
  3. MEXILETINE [Suspect]
     Active Substance: MEXILETINE
     Dosage: UNK,  SLOWLY WEANED OFF
  4. PHENYTOIN [Concomitant]
     Active Substance: PHENYTOIN
     Indication: Torsade de pointes
     Dosage: 4 MILLIGRAM/KILOGRAM, TID, THREE TIMES DAILY (DRUG DISCONTINUED)
     Route: 048
  5. PHENYTOIN [Concomitant]
     Active Substance: PHENYTOIN
     Dosage: UNK, THEN RESTARTED (ACTION TAKEN: DRUG DISCONTINUED AND THEN RESTARTED)
     Route: 048
  6. PHENYTOIN [Concomitant]
     Active Substance: PHENYTOIN
     Route: 048
  7. PHENYTOIN [Concomitant]
     Active Substance: PHENYTOIN
     Route: 048
  8. FLECAINIDE [Concomitant]
     Active Substance: FLECAINIDE
     Indication: Torsade de pointes
     Dosage: UNK
  9. RANOLAZINE [Concomitant]
     Active Substance: RANOLAZINE
     Indication: Torsade de pointes
     Dosage: UNK
  10. DILTIAZEM [Concomitant]
     Active Substance: DILTIAZEM
     Indication: Torsade de pointes
     Dosage: UNK

REACTIONS (2)
  - Arrhythmic storm [Unknown]
  - Off label use [Unknown]
